FAERS Safety Report 17117595 (Version 4)
Quarter: 2021Q3

REPORT INFORMATION
  Report Type: Spontaneous
  Country: US (occurrence: US)
  Receive Date: 20191205
  Receipt Date: 20210826
  Transmission Date: 20211014
  Serious: No
  Sender: FDA-Public Use
  Company Number: US-BIOCODEX SA-201901056

PATIENT

DRUGS (4)
  1. DIACOMIT [Suspect]
     Active Substance: STIRIPENTOL
     Dosage: 500 MILLIGRAM EVERY 1 DAY(S) 250MG,TAKE 1 CAPSULE BY MOUTH TWICE DAILY
     Route: 048
  2. CLOBAZAM. [Concomitant]
     Active Substance: CLOBAZAM
     Indication: SEVERE MYOCLONIC EPILEPSY OF INFANCY
     Dosage: UNK
     Route: 065
  3. DEPAKOTE [Concomitant]
     Active Substance: DIVALPROEX SODIUM
     Indication: PRODUCT USED FOR UNKNOWN INDICATION
     Dosage: UNK
     Route: 065
  4. DIACOMIT [Suspect]
     Active Substance: STIRIPENTOL
     Indication: SEVERE MYOCLONIC EPILEPSY OF INFANCY
     Dosage: 500 MILLIGRAM EVERY 1 DAY(S) 2 CAPSULES ONCE DAILY
     Route: 048
     Dates: start: 20190702

REACTIONS (4)
  - Limb injury [Unknown]
  - Fall [Unknown]
  - Alopecia [Not Recovered/Not Resolved]
  - Behaviour disorder [Unknown]
